FAERS Safety Report 11358968 (Version 1)
Quarter: 2015Q3

REPORT INFORMATION
  Report Type: Spontaneous
  Country: US (occurrence: US)
  Receive Date: 20150807
  Receipt Date: 20150807
  Transmission Date: 20151125
  Serious: No
  Sender: FDA-Public Use
  Company Number: US-TOLMAR INC.-1040971

PATIENT
  Age: 26 Year
  Sex: Female

DRUGS (2)
  1. ADAPALENE GEL, 0.3% [Suspect]
     Active Substance: ADAPALENE
     Indication: ACNE
     Route: 061
  2. SULFACETAMIDE. [Concomitant]
     Active Substance: SULFACETAMIDE

REACTIONS (4)
  - Condition aggravated [Unknown]
  - Skin discolouration [Unknown]
  - Skin wrinkling [Unknown]
  - Thermal burn [Unknown]
